FAERS Safety Report 7574924-0 (Version None)
Quarter: 2011Q2

REPORT INFORMATION
  Report Type: 
  Country: None (occurrence: None)
  Receive Date: 20110627
  Receipt Date: 20110609
  Transmission Date: 20111010
  Serious: Yes (Hospitalization)
  Sender: FDA-Public Use
  Company Number: FR-BAYER-2011-034568

PATIENT
  Age: 79 Year
  Sex: Male
  Weight: 103 kg

DRUGS (15)
  1. HYZAAR [Concomitant]
     Indication: HYPERTENSION
     Dosage: ONE CAPSULE
     Route: 048
     Dates: start: 20100401
  2. NUCTALON [Concomitant]
     Indication: INSOMNIA
     Dosage: UNK UNK, PRN
     Route: 048
     Dates: start: 20100901
  3. LOCAPRED [Concomitant]
     Indication: PALMAR-PLANTAR ERYTHRODYSAESTHESIA SYNDROME
     Dosage: UNK UNK, PRN
     Route: 003
     Dates: start: 20110329, end: 20110401
  4. XALACOM [Concomitant]
     Indication: GLAUCOMA
     Dosage: 1 DROP TOTAL DAILY DOSE
     Route: 047
  5. SMECTA [SMECTITE] [Concomitant]
     Indication: DIARRHOEA
     Dosage: UNK UNK, PRN
     Route: 048
     Dates: start: 20090101
  6. HYPERIUM [Concomitant]
     Indication: HYPERTENSION
     Dosage: DAILY DOSE 1 MG
     Route: 048
     Dates: start: 20081101
  7. EBASTINE [Concomitant]
     Indication: DYSPHONIA
     Dosage: DAILY DOSE 10 MG
     Route: 048
     Dates: start: 20101101
  8. SORAFENIB (RAF KINASE INHIBITOR) [Suspect]
     Indication: RENAL CELL CARCINOMA
     Dosage: DAILY DOSE 400 MG
     Route: 048
     Dates: start: 20090123, end: 20110329
  9. SERC [Concomitant]
     Indication: VERTIGO
     Dosage: DAILY DOSE 24 MG
     Route: 048
  10. ESCITALOPRAM OXALATE [Concomitant]
     Indication: DYSPHONIA
     Dosage: DAILY DOSE 10 MG
     Route: 048
     Dates: start: 20101101
  11. VASELINE [Concomitant]
     Indication: PALMAR-PLANTAR ERYTHRODYSAESTHESIA SYNDROME
     Dosage: UNK, PRN
     Route: 003
     Dates: start: 20110301, end: 20110401
  12. DEXERYL [GLYCEROL,PARAFFIN, LIQUID,WHITE SOFT PARAFFIN] [Concomitant]
     Indication: PALMAR-PLANTAR ERYTHRODYSAESTHESIA SYNDROME
     Dosage: UNK UNK, PRN
     Route: 003
     Dates: start: 20110329, end: 20110401
  13. NICARDIPINE HCL [Concomitant]
     Indication: HYPERTENSION
     Dosage: DAILY DOSE 100 MG
     Route: 048
  14. EUPRESSYL [Concomitant]
     Indication: HYPERTENSION
     Dosage: DAILY DOSE 60 MG
     Dates: start: 20080425, end: 20110419
  15. BIMATOPROST AND TIMOLOL MALEATE [Concomitant]
     Indication: GLAUCOMA
     Dosage: 1 DROP TOTAL DAILY DOSE
     Route: 047
     Dates: start: 20110401

REACTIONS (1)
  - LYMPHOEDEMA [None]
